FAERS Safety Report 9809683 (Version 2)
Quarter: 2014Q1

REPORT INFORMATION
  Report Type: Spontaneous
  Country: US (occurrence: US)
  Receive Date: 20140110
  Receipt Date: 20140110
  Transmission Date: 20141002
  Serious: Yes (Hospitalization)
  Sender: FDA-Public Use
  Company Number: US-SANOFI-AVENTIS-2012SA043797

PATIENT
  Age: 50 Year
  Sex: Male
  Weight: 72 kg

DRUGS (8)
  1. PLAVIX [Suspect]
     Indication: ACUTE CORONARY SYNDROME
     Route: 048
     Dates: start: 20120521, end: 20120524
  2. OTAMIXABAN [Suspect]
     Indication: ACUTE CORONARY SYNDROME
     Route: 042
     Dates: start: 20120517, end: 20120517
  3. ASPIRIN (E.C.) [Suspect]
     Indication: ACUTE CORONARY SYNDROME
     Route: 048
     Dates: start: 20120516, end: 20120516
  4. ASPIRIN (E.C.) [Suspect]
     Indication: ACUTE CORONARY SYNDROME
     Route: 048
     Dates: start: 20120520, end: 20120524
  5. PROTAMINE [Concomitant]
  6. LISINOPRIL [Concomitant]
     Dates: start: 20120517
  7. FENTANYL [Concomitant]
     Dates: start: 20120517, end: 20120529
  8. VERSED [Concomitant]
     Dates: start: 20120517, end: 20120529

REACTIONS (2)
  - Duodenal ulcer [Recovered/Resolved]
  - Duodenal ulcer haemorrhage [Recovered/Resolved]
